FAERS Safety Report 6518598-6 (Version None)
Quarter: 2009Q4

REPORT INFORMATION
  Report Type: 
  Country: None (occurrence: None)
  Receive Date: 20091228
  Receipt Date: 20091219
  Transmission Date: 20100525
  Serious: Yes (Hospitalization, Other)
  Sender: FDA-Public Use
  Company Number: CA-ELI_LILLY_AND_COMPANY-CA200912004652

PATIENT
  Age: 83 Year
  Sex: Female

DRUGS (10)
  1. FORTEO [Suspect]
     Indication: OSTEOPOROSIS
     Dosage: 20 UG, DAILY (1/D)
     Route: 058
     Dates: start: 20091014, end: 20091215
  2. ASAPHEN [Concomitant]
  3. APO-FUROSEMIDE [Concomitant]
  4. LIPITOR [Concomitant]
  5. PANTOLOC                           /01263201/ [Concomitant]
  6. ALTACE [Concomitant]
  7. EURO-D [Concomitant]
  8. APO-CAL [Concomitant]
  9. PAXIL [Concomitant]
  10. TYLENOL                                 /SCH/ [Concomitant]

REACTIONS (4)
  - BLOOD PRESSURE INCREASED [None]
  - DRUG DOSE OMISSION [None]
  - DYSPNOEA [None]
  - HAEMOGLOBIN DECREASED [None]
